FAERS Safety Report 26138268 (Version 1)
Quarter: 2025Q4

REPORT INFORMATION
  Report Type: Report from Study
  Country: CA (occurrence: CA)
  Receive Date: 20251210
  Receipt Date: 20251210
  Transmission Date: 20260117
  Serious: Yes (Other)
  Sender: ABBVIE
  Company Number: CA-ABBVIE-6576403

PATIENT
  Age: 56 Year
  Sex: Female

DRUGS (2)
  1. SKYRIZI [Suspect]
     Active Substance: RISANKIZUMAB-RZAA
     Indication: Crohn^s disease
     Dosage: ROUTE: SOLUTION FOR INJECTION IN PRE-FILLED SYRINGE
     Route: 058
  2. SKYRIZI [Suspect]
     Active Substance: RISANKIZUMAB-RZAA
     Indication: Crohn^s disease
     Dosage: ROUTE: SOLUTION FOR INFUSION IN PRE-FILLED SYRINGE
     Route: 042

REACTIONS (8)
  - Retinal artery occlusion [Unknown]
  - Susac^s syndrome [Unknown]
  - Headache [Unknown]
  - Disturbance in attention [Unknown]
  - Blindness [Unknown]
  - Cerebrovascular accident [Unknown]
  - Sensory disturbance [Not Recovered/Not Resolved]
  - Neurological symptom [Unknown]

NARRATIVE: CASE EVENT DATE: 20250101
